FAERS Safety Report 4679137-8 (Version None)
Quarter: 2005Q2

REPORT INFORMATION
  Report Type: 
  Country: None (occurrence: None)
  Receive Date: 20050527
  Receipt Date: 20050131
  Transmission Date: 20051028
  Serious: No
  Sender: FDA-Public Use
  Company Number: PHEH2005US01460

PATIENT
  Age: 75 Year
  Sex: Female

DRUGS (1)
  1. ZELNORM [Suspect]
     Indication: POST GASTRIC SURGERY SYNDROME
     Dates: start: 20050127, end: 20050128

REACTIONS (1)
  - JOINT SWELLING [None]
